FAERS Safety Report 19367351 (Version 1)
Quarter: 2021Q2

REPORT INFORMATION
  Report Type: Spontaneous
  Country: CA (occurrence: CA)
  Receive Date: 20210603
  Receipt Date: 20210603
  Transmission Date: 20210717
  Serious: Yes (Other)
  Sender: FDA-Public Use
  Company Number: CA-PFIZER INC-2021605732

PATIENT

DRUGS (2)
  1. HUMIRA [Suspect]
     Active Substance: ADALIMUMAB
     Dosage: 40 MG, WEEKLY
     Route: 058
  2. METHOTREXATE SODIUM. [Suspect]
     Active Substance: METHOTREXATE SODIUM
     Route: 065

REACTIONS (7)
  - Gastrointestinal disorder [Unknown]
  - Retinal ischaemia [Unknown]
  - Seizure [Unknown]
  - Syncope [Unknown]
  - Palpitations [Unknown]
  - Retinal vasculitis [Unknown]
  - Retinal neovascularisation [Unknown]
